FAERS Safety Report 20131231 (Version 4)
Quarter: 2022Q1

REPORT INFORMATION
  Report Type: Report from Study
  Country: US (occurrence: US)
  Receive Date: 20211130
  Receipt Date: 20220127
  Transmission Date: 20220424
  Serious: Yes (Death, Hospitalization, Other)
  Sender: FDA-Public Use
  Company Number: US-TAKEDA-2021TUS075017

PATIENT
  Age: 67 Year
  Sex: Male
  Weight: 70 kg

DRUGS (2)
  1. MOBOCERTINIB [Suspect]
     Active Substance: MOBOCERTINIB
     Indication: Lung neoplasm malignant
     Dosage: 160 MILLIGRAM, QD
     Route: 048
     Dates: start: 20211103
  2. MOBOCERTINIB [Suspect]
     Active Substance: MOBOCERTINIB
     Dosage: 100 MILLIGRAM, QD
     Route: 048

REACTIONS (9)
  - Death [Fatal]
  - Dizziness [Unknown]
  - Peripheral swelling [Unknown]
  - Joint swelling [Unknown]
  - Blood albumin decreased [Unknown]
  - Lethargy [Unknown]
  - Fatigue [Unknown]
  - Decreased appetite [Unknown]
  - Diarrhoea [Unknown]

NARRATIVE: CASE EVENT DATE: 20211101
